FAERS Safety Report 22630980 (Version 1)
Quarter: 2023Q2

REPORT INFORMATION
  Report Type: Spontaneous
  Country: JP (occurrence: JP)
  Receive Date: 20230622
  Receipt Date: 20230622
  Transmission Date: 20230722
  Serious: Yes (Death, Other)
  Sender: FDA-Public Use
  Company Number: JP-SAKK-2023SA189535AA

PATIENT
  Age: 60 Year
  Sex: Male
  Weight: 50 kg

DRUGS (1)
  1. FABRAZYME [Suspect]
     Active Substance: AGALSIDASE BETA
     Indication: Fabry^s disease
     Dosage: 50 MG/DAY
     Route: 041
     Dates: start: 20170203

REACTIONS (4)
  - Infected skin ulcer [Fatal]
  - Multiple organ dysfunction syndrome [Fatal]
  - Skin ulcer [Unknown]
  - Disease progression [Unknown]

NARRATIVE: CASE EVENT DATE: 20230501
